FAERS Safety Report 23348541 (Version 1)
Quarter: 2023Q4

REPORT INFORMATION
  Report Type: Report from Study
  Country: US (occurrence: None)
  Receive Date: 20231228
  Receipt Date: 20231228
  Transmission Date: 20240110
  Serious: Yes (Death)
  Sender: FDA-Public Use
  Company Number: 2023A294764

PATIENT
  Age: 28347 Day
  Sex: Male

DRUGS (7)
  1. TAGRISSO [Suspect]
     Active Substance: OSIMERTINIB
     Indication: Lung neoplasm malignant
     Route: 048
     Dates: start: 20220722
  2. ASPIRIN [Concomitant]
     Active Substance: ASPIRIN
  3. OXYCODONE HYDROCHLORIDE [Concomitant]
     Active Substance: OXYCODONE HYDROCHLORIDE
  4. CALCIUM [Concomitant]
     Active Substance: CALCIUM
  5. FOLIC ACID [Concomitant]
     Active Substance: FOLIC ACID
  6. BENZONATATE [Concomitant]
     Active Substance: BENZONATATE
  7. MELATONIN [Concomitant]
     Active Substance: MELATONIN

REACTIONS (1)
  - Death [Fatal]

NARRATIVE: CASE EVENT DATE: 20231026
